FAERS Safety Report 11741436 (Version 6)
Quarter: 2016Q4

REPORT INFORMATION
  Report Type: Spontaneous
  Country: US (occurrence: US)
  Receive Date: 20151116
  Receipt Date: 20161213
  Transmission Date: 20170206
  Serious: Yes (Other)
  Sender: FDA-Public Use
  Company Number: PHEH2015US023578

PATIENT
  Sex: Female

DRUGS (2)
  1. ZOFRAN [Suspect]
     Active Substance: ONDANSETRON HYDROCHLORIDE
     Indication: VOMITING IN PREGNANCY
     Dosage: UNK
     Route: 048
  2. ONDANSETRON TEVA//ONDANSETRON [Suspect]
     Active Substance: ONDANSETRON
     Indication: VOMITING IN PREGNANCY
     Dosage: 4 MG, PRN
     Route: 065
     Dates: start: 20121219, end: 20130301

REACTIONS (6)
  - Pain [Unknown]
  - Anxiety [Unknown]
  - Product use issue [Unknown]
  - Gestational hypertension [Unknown]
  - Emotional distress [Unknown]
  - Maternal exposure during pregnancy [Unknown]
